FAERS Safety Report 13040580 (Version 1)
Quarter: 2016Q4

REPORT INFORMATION
  Report Type: Spontaneous
  Country: US (occurrence: US)
  Receive Date: 20161219
  Receipt Date: 20161219
  Transmission Date: 20170207
  Serious: Yes (Other)
  Sender: FDA-Public Use
  Company Number: US-SA-2016SA099925

PATIENT
  Age: 73 Year
  Sex: Female

DRUGS (4)
  1. ASPIRIN. [Suspect]
     Active Substance: ASPIRIN
     Route: 065
     Dates: start: 2014, end: 20151224
  2. PRALUENT [Concomitant]
     Active Substance: ALIROCUMAB
     Dosage: NOVEMBER OR DECEMBER 2015
     Dates: start: 2015
  3. ALIROCUMAB PREFILLED PEN [Concomitant]
     Active Substance: ALIROCUMAB
     Dates: start: 2015
  4. PLAVIX [Suspect]
     Active Substance: CLOPIDOGREL BISULFATE
     Route: 065
     Dates: start: 2014, end: 20151224

REACTIONS (1)
  - Cerebrovascular accident [Not Recovered/Not Resolved]
